FAERS Safety Report 10312116 (Version 1)
Quarter: 2014Q3

REPORT INFORMATION
  Report Type: Spontaneous
  Country: AR (occurrence: AR)
  Receive Date: 20140717
  Receipt Date: 20140717
  Transmission Date: 20150326
  Serious: Yes (Hospitalization, Other)
  Sender: FDA-Public Use
  Company Number: AR-AMGEN INC.-ARGSP2014053722

PATIENT
  Age: 38 Year
  Sex: Female

DRUGS (1)
  1. ENBREL [Suspect]
     Active Substance: ETANERCEPT
     Indication: RHEUMATOID ARTHRITIS
     Dosage: 50 MG, WEEKLY
     Route: 065
     Dates: start: 20071127

REACTIONS (2)
  - Epilepsy [Unknown]
  - Sensory loss [Unknown]

NARRATIVE: CASE EVENT DATE: 20140512
